FAERS Safety Report 21161751 (Version 1)
Quarter: 2022Q3

REPORT INFORMATION
  Report Type: Spontaneous
  Country: US (occurrence: None)
  Receive Date: 20220802
  Receipt Date: 20220802
  Transmission Date: 20221026
  Serious: Yes (Life-Threatening, Hospitalization, Other)
  Sender: FDA-Public Use
  Company Number: None

PATIENT
  Age: 45 Year
  Sex: Female
  Weight: 51.3 kg

DRUGS (1)
  1. .DELTA.8-TETRAHYDROCANNABINOL\CANNABIDIOL\HERBALS [Suspect]
     Active Substance: .DELTA.8-TETRAHYDROCANNABINOL\CANNABIDIOL\HERBALS
     Indication: Relaxation therapy
     Dosage: OTHER QUANTITY : 1 GUMMY;?OTHER FREQUENCY : DOES NOT SAY;?
     Route: 048
     Dates: start: 20220730, end: 20220730

REACTIONS (8)
  - Dizziness [None]
  - Dysarthria [None]
  - Tachyphrenia [None]
  - Panic attack [None]
  - Thirst [None]
  - Loss of consciousness [None]
  - Vomiting [None]
  - Delusional perception [None]

NARRATIVE: CASE EVENT DATE: 20220730
